FAERS Safety Report 5792705-5 (Version None)
Quarter: 2008Q2

REPORT INFORMATION
  Report Type: 
  Country: None (occurrence: None)
  Receive Date: 20080624
  Receipt Date: 20080610
  Transmission Date: 20081010
  Serious: Yes (Hospitalization)
  Sender: FDA-Public Use
  Company Number: 2008001363

PATIENT
  Age: 69 Year
  Sex: Male
  Weight: 69.4003 kg

DRUGS (13)
  1. ERLOTINIB (ERLOTINIB) (TABLET) (ERLOTINIB) [Suspect]
     Indication: RENAL CANCER METASTATIC
     Dosage: (150 MG, QD), ORAL
     Route: 048
     Dates: start: 20080306, end: 20080528
  2. RAPAMUNE [Suspect]
     Dosage: (3 MG, QD), ORAL
     Route: 048
     Dates: start: 20080313, end: 20080528
  3. B12 (CYANOCOBALAMIN) [Concomitant]
  4. BENZACLIN [Concomitant]
  5. DICYCLOMINE [Concomitant]
  6. LOMOTIL [Concomitant]
  7. DOXAZOSIN (DOXAZOSIN) [Concomitant]
  8. FINASTERIDE [Concomitant]
  9. FUROSEMIDE [Concomitant]
  10. NOVOLIN N [Concomitant]
  11. SYNTHROID [Concomitant]
  12. LORATADINE [Concomitant]
  13. METAMUCIL-2 [Concomitant]

REACTIONS (4)
  - DEHYDRATION [None]
  - DIARRHOEA [None]
  - HYPOTENSION [None]
  - MYOCARDIAL INFARCTION [None]
